FAERS Safety Report 10022705 (Version 1)
Quarter: 2014Q1

REPORT INFORMATION
  Report Type: Spontaneous
  Country: US (occurrence: US)
  Receive Date: 20140319
  Receipt Date: 20140319
  Transmission Date: 20141002
  Serious: Yes (Other)
  Sender: FDA-Public Use
  Company Number: US-PFIZER INC-2014076427

PATIENT
  Sex: Female

DRUGS (1)
  1. LYRICA [Suspect]
     Dosage: 75 MG, 2X/DAY

REACTIONS (6)
  - Diabetes mellitus [Unknown]
  - Drug effect incomplete [Unknown]
  - Arthropathy [Unknown]
  - Arthralgia [Unknown]
  - Herpes zoster [Unknown]
  - Nerve injury [Unknown]
